FAERS Safety Report 24284600 (Version 1)
Quarter: 2024Q3

REPORT INFORMATION
  Report Type: Report from Study
  Country: US (occurrence: US)
  Receive Date: 20240905
  Receipt Date: 20240905
  Transmission Date: 20241016
  Serious: Yes (Other)
  Sender: ABBVIE
  Company Number: US-ABBVIE-5903652

PATIENT
  Age: 46 Year
  Sex: Female

DRUGS (1)
  1. RESTASIS [Suspect]
     Active Substance: CYCLOSPORINE
     Indication: Product used for unknown indication
     Dosage: 0.05% EYE INSTILL ONE DROP IN EACH EYE
     Route: 047

REACTIONS (2)
  - Surgery [Unknown]
  - Haemorrhage [Unknown]

NARRATIVE: CASE EVENT DATE: 20240829
